FAERS Safety Report 10475490 (Version 1)
Quarter: 2014Q3

REPORT INFORMATION
  Report Type: Spontaneous
  Country: US (occurrence: None)
  Receive Date: 20140924
  Receipt Date: 20140924
  Transmission Date: 20150326
  Serious: Yes (Hospitalization)
  Sender: FDA-Public Use
  Company Number: None

PATIENT
  Age: 71 Year
  Sex: Female
  Weight: 75.8 kg

DRUGS (14)
  1. XANAX [Concomitant]
     Active Substance: ALPRAZOLAM
  2. CATAPRES [Concomitant]
     Active Substance: CLONIDINE HYDROCHLORIDE
  3. SPIRONOLACTONE. [Suspect]
     Active Substance: SPIRONOLACTONE
     Indication: HYPERTENSION
     Dosage: CHRONIC
     Route: 048
  4. AMILORIDE [Suspect]
     Active Substance: AMILORIDE
     Indication: HYPERTENSION
     Dosage: CHRONIC
     Route: 048
  5. FOLIC ACID. [Concomitant]
     Active Substance: FOLIC ACID
  6. PIOGLITAZONE [Concomitant]
     Active Substance: PIOGLITAZONE
  7. PARICALCITROL [Concomitant]
  8. TEMAZEPAM. [Concomitant]
     Active Substance: TEMAZEPAM
  9. COREG [Concomitant]
     Active Substance: CARVEDILOL
  10. JANUVIA [Concomitant]
     Active Substance: SITAGLIPTIN PHOSPHATE
  11. VALSARTAN. [Suspect]
     Active Substance: VALSARTAN
  12. COLACE [Concomitant]
     Active Substance: DOCUSATE SODIUM
  13. HYDRALAZINE [Concomitant]
     Active Substance: HYDRALAZINE HYDROCHLORIDE
  14. ASPIRIN. [Concomitant]
     Active Substance: ASPIRIN

REACTIONS (2)
  - Fatigue [None]
  - Hyperkalaemia [None]

NARRATIVE: CASE EVENT DATE: 20140308
